FAERS Safety Report 9218278 (Version 1)
Quarter: 2013Q2

REPORT INFORMATION
  Report Type: Spontaneous
  Country: CY (occurrence: CY)
  Receive Date: 20130409
  Receipt Date: 20130409
  Transmission Date: 20140414
  Serious: Yes (Life-Threatening, Hospitalization, Other)
  Sender: FDA-Public Use
  Company Number: CY-009507513-1304CYP003003

PATIENT
  Age: 69 Year
  Sex: Female

DRUGS (1)
  1. ESMERON [Suspect]
     Indication: GENERAL ANAESTHESIA
     Dosage: 40 MG
     Route: 042
     Dates: start: 20130327, end: 20130327

REACTIONS (5)
  - Cardiogenic shock [Recovered/Resolved]
  - Dyspnoea [Recovered/Resolved]
  - Sinus tachycardia [Recovered/Resolved]
  - Erythema [Recovered/Resolved]
  - Bronchospasm [Recovered/Resolved]
